FAERS Safety Report 5778446-9 (Version None)
Quarter: 2008Q2

REPORT INFORMATION
  Report Type: 
  Country: None (occurrence: None)
  Receive Date: 20080619
  Receipt Date: 20080609
  Transmission Date: 20081010
  Serious: Yes (Other)
  Sender: FDA-Public Use
  Company Number: US-TEVA-172694USA

PATIENT
  Age: 47 Year
  Sex: Male

DRUGS (7)
  1. DAUNORUBICIN HYDROCHLORIDE 20MG BASE/10ML, 50MG BASE/20ML [Suspect]
     Indication: ACUTE MYELOID LEUKAEMIA
  2. ETOPOSIDE [Suspect]
     Indication: ACUTE MYELOID LEUKAEMIA
  3. IDARUBICIN HCL [Suspect]
     Indication: ACUTE MYELOID LEUKAEMIA
  4. CYTARABINE [Suspect]
     Indication: ACUTE MYELOID LEUKAEMIA
  5. GRANULOCYTE MACROPHAGE COLONY STIM FACTOR [Suspect]
     Indication: ACUTE MYELOID LEUKAEMIA
     Dosage: 250 MICROGRAM/KG/DAY
  6. BUSULFAN [Suspect]
     Indication: ACUTE MYELOID LEUKAEMIA
  7. CYCLOPHOSPHAMIDE [Suspect]
     Indication: ACUTE MYELOID LEUKAEMIA

REACTIONS (1)
  - MYELODYSPLASTIC SYNDROME [None]
